FAERS Safety Report 17562582 (Version 5)
Quarter: 2025Q1

REPORT INFORMATION
  Report Type: Report from Study
  Country: DE (occurrence: DE)
  Receive Date: 20200319
  Receipt Date: 20250328
  Transmission Date: 20250409
  Serious: No
  Sender: TAKEDA
  Company Number: DE-SHIRE-DE202010387

PATIENT
  Age: 58 Year
  Sex: Male

DRUGS (37)
  1. TEDUGLUTIDE [Suspect]
     Active Substance: TEDUGLUTIDE
     Indication: Short-bowel syndrome
     Dosage: 3.65 MILLIGRAM, QD
     Dates: start: 20160825, end: 201702
  2. TEDUGLUTIDE [Suspect]
     Active Substance: TEDUGLUTIDE
     Dosage: 3.85 MILLIGRAM, QD
     Dates: start: 201702
  3. TEDUGLUTIDE [Suspect]
     Active Substance: TEDUGLUTIDE
  4. TEDUGLUTIDE [Suspect]
     Active Substance: TEDUGLUTIDE
  5. PROPOFOL [Concomitant]
     Active Substance: PROPOFOL
     Indication: Colonoscopy
     Dosage: 320 MILLIGRAM, QD
     Dates: start: 20200903, end: 20200903
  6. PROPOFOL [Concomitant]
     Active Substance: PROPOFOL
     Indication: Oesophagogastroscopy
     Dosage: 400 MILLIGRAM, QD
     Dates: start: 20221117, end: 20221117
  7. PROPOFOL [Concomitant]
     Active Substance: PROPOFOL
     Indication: Imaging procedure
     Dosage: 650 MILLIGRAM, QD
     Dates: end: 20200903
  8. PROPOFOL [Concomitant]
     Active Substance: PROPOFOL
     Dosage: 500 MILLIGRAM, QD
     Dates: start: 20230803, end: 20230803
  9. PROPOFOL [Concomitant]
     Active Substance: PROPOFOL
     Dosage: 590 MILLIGRAM, QD
     Dates: start: 20230223, end: 20230223
  10. PROPOFOL [Concomitant]
     Active Substance: PROPOFOL
     Dosage: 550 MILLIGRAM, QD
     Dates: start: 20240808, end: 20240808
  11. FLUCLOXACILLIN [Concomitant]
     Active Substance: FLUCLOXACILLIN
     Indication: Cellulitis
  12. AMPICILLIN SODIUM\SULBACTAM SODIUM [Concomitant]
     Active Substance: AMPICILLIN SODIUM\SULBACTAM SODIUM
     Indication: Vascular device infection
  13. CYANOCOBALAMIN [Concomitant]
     Active Substance: CYANOCOBALAMIN
     Indication: Vitamin B12 deficiency
     Dosage: 10 MICROGRAM, QD
     Dates: start: 20230224, end: 2023
  14. MAGNESIUM [Concomitant]
     Active Substance: MAGNESIUM
     Dosage: UNK UNK, BID
     Dates: start: 20230222
  15. CHOLECALCIFEROL [Concomitant]
     Active Substance: CHOLECALCIFEROL
     Indication: Vitamin D deficiency
  16. CHOLECALCIFEROL [Concomitant]
     Active Substance: CHOLECALCIFEROL
  17. PANTOPRAZOLE [Concomitant]
     Active Substance: PANTOPRAZOLE
     Indication: Prophylaxis
     Dosage: 40 MILLIGRAM, BID
     Dates: start: 20150916, end: 20221115
  18. PANTOPRAZOLE [Concomitant]
     Active Substance: PANTOPRAZOLE
     Dosage: 20 MILLIGRAM, QD
     Dates: start: 20221116
  19. CHOLESTYRAMINE [Concomitant]
     Active Substance: CHOLESTYRAMINE
     Indication: Bile acid malabsorption
     Dosage: 4 GRAM, QID
  20. CHOLESTYRAMINE [Concomitant]
     Active Substance: CHOLESTYRAMINE
     Dosage: 4 GRAM, TID
     Dates: start: 20210830
  21. EBASTINE [Concomitant]
     Active Substance: EBASTINE
     Indication: Hypersensitivity
     Dosage: UNK UNK, QD
  22. SPIRIVA [Concomitant]
     Active Substance: TIOTROPIUM BROMIDE MONOHYDRATE
     Indication: Chronic obstructive pulmonary disease
     Dosage: UNK UNK, QD
  23. SYMBICORT [Concomitant]
     Active Substance: BUDESONIDE\FORMOTEROL FUMARATE DIHYDRATE
     Indication: Chronic obstructive pulmonary disease
     Dosage: UNK UNK, BID
  24. RAMIPRIL [Concomitant]
     Active Substance: RAMIPRIL
     Indication: Hypertension
     Dosage: 2.50 MILLIGRAM, QD
  25. CLOPIDOGREL [Concomitant]
     Active Substance: CLOPIDOGREL BISULFATE
     Indication: Prophylaxis
     Dosage: 75 MILLIGRAM, QD
  26. LOPERAMIDE [Concomitant]
     Active Substance: LOPERAMIDE
     Indication: Diarrhoea
     Dosage: 2 MILLIGRAM, QID
  27. ALBUTEROL [Concomitant]
     Active Substance: ALBUTEROL
     Indication: Chronic obstructive pulmonary disease
     Dosage: 0.10 MILLIGRAM, QD
  28. BECLOMETHASONE DIPROPIONATE [Concomitant]
     Active Substance: BECLOMETHASONE DIPROPIONATE
     Indication: Chronic obstructive pulmonary disease
     Dosage: UNK UNK, QD
  29. BONVIVA [Concomitant]
     Active Substance: IBANDRONATE SODIUM
     Indication: Osteoporosis
  30. FENTANYL [Concomitant]
     Active Substance: FENTANYL
     Indication: Pain
  31. Novalgin [Concomitant]
     Indication: Pain
  32. COVID-19 vaccine [Concomitant]
     Indication: Immunisation
  33. ENOXAPARIN [Concomitant]
     Active Substance: ENOXAPARIN
     Indication: Thrombosis prophylaxis
     Dosage: 40 MILLIGRAM, QD
     Dates: start: 20210816, end: 20210830
  34. VALERIAN [Concomitant]
     Active Substance: VALERIAN
     Indication: Sleep disorder
  35. PROPOFOL [Concomitant]
     Active Substance: PROPOFOL
     Indication: Endoscopy
     Dates: start: 20210923, end: 20210923
  36. PROPOFOL [Concomitant]
     Active Substance: PROPOFOL
     Indication: Colonoscopy
  37. DENOSUMAB [Concomitant]
     Active Substance: DENOSUMAB
     Indication: Bone disorder

REACTIONS (5)
  - Gastritis [Recovered/Resolved]
  - Hepatic steatosis [Not Recovered/Not Resolved]
  - Pancreatic steatosis [Not Recovered/Not Resolved]
  - Gastric polyps [Recovered/Resolved]
  - Large intestine polyp [Recovered/Resolved]

NARRATIVE: CASE EVENT DATE: 20190801
